FAERS Safety Report 23616681 (Version 2)
Quarter: 2024Q3

REPORT INFORMATION
  Report Type: Report from Study
  Country: BR (occurrence: BR)
  Receive Date: 20240311
  Receipt Date: 20240814
  Transmission Date: 20241017
  Serious: Yes (Other)
  Sender: NOVARTIS
  Company Number: BR-002147023-NVSC2023BR129895

PATIENT
  Sex: Female

DRUGS (3)
  1. KISQALI [Suspect]
     Active Substance: RIBOCICLIB
     Indication: Breast cancer female
     Dosage: 3 UNK
     Route: 065
     Dates: start: 20230525
  2. KISQALI [Suspect]
     Active Substance: RIBOCICLIB
     Indication: Invasive breast carcinoma
  3. ANASTROZOLE [Concomitant]
     Active Substance: ANASTROZOLE
     Indication: Product used for unknown indication
     Dosage: 1 DOSAGE FORM, QD
     Route: 048

REACTIONS (11)
  - Metastases to liver [Unknown]
  - Metastases to lung [Unknown]
  - Metastases to bone [Unknown]
  - Abdominal discomfort [Unknown]
  - Pruritus [Not Recovered/Not Resolved]
  - Product prescribing error [Unknown]
  - Drug ineffective [Unknown]
  - Breast mass [Unknown]
  - Hepatic mass [Unknown]
  - Pulmonary mass [Unknown]
  - Nodule [Unknown]
